FAERS Safety Report 9043269 (Version 1)
Quarter: 2013Q1

REPORT INFORMATION
  Report Type: Report from Study
  Country: US (occurrence: US)
  Receive Date: 20130129
  Receipt Date: 20130129
  Transmission Date: 20140127
  Serious: No
  Sender: FDA-Public Use
  Company Number: US-ABBOTT-12P-163-0914223-00

PATIENT
  Sex: Female
  Weight: 88.53 kg

DRUGS (11)
  1. HUMIRA 40 MG/0.8 ML PEN [Suspect]
     Indication: CROHN^S DISEASE
     Route: 058
     Dates: start: 200811, end: 201201
  2. ARIMEDEX [Concomitant]
     Indication: NEOPLASM MALIGNANT
  3. NEXIUM [Concomitant]
     Indication: GASTROOESOPHAGEAL REFLUX DISEASE
     Dates: start: 2007
  4. FOLIC ACID [Concomitant]
     Indication: PRODUCT USED FOR UNKNOWN INDICATION
  5. CALCIUM WITH VITAMIN D [Concomitant]
     Indication: PRODUCT USED FOR UNKNOWN INDICATION
  6. MULTIVITAMIN [Concomitant]
     Indication: PRODUCT USED FOR UNKNOWN INDICATION
  7. BABY ASPIRIN [Concomitant]
     Indication: PROPHYLAXIS
  8. LOSARTAN [Concomitant]
     Indication: HYPERTENSION
  9. ZYRTEC [Concomitant]
     Indication: HYPERSENSITIVITY
  10. XIFAXAN [Concomitant]
     Indication: CROHN^S DISEASE
     Dosage: 10 DAYS A MONTH
     Dates: start: 201201
  11. FOSOMAX [Concomitant]
     Indication: OSTEOPOROSIS

REACTIONS (3)
  - Rash pruritic [Recovered/Resolved]
  - Urticaria [Recovered/Resolved]
  - Rash [Recovered/Resolved]
